FAERS Safety Report 9900660 (Version 2)
Quarter: 2014Q2

REPORT INFORMATION
  Report Type: Spontaneous
  Country: JP (occurrence: JP)
  Receive Date: 20140217
  Receipt Date: 20140408
  Transmission Date: 20141212
  Serious: Yes (Other)
  Sender: FDA-Public Use
  Company Number: JP-ROCHE-1348498

PATIENT
  Age: 64 Year
  Sex: Female

DRUGS (3)
  1. XELODA [Suspect]
     Indication: RECTAL CANCER METASTATIC
     Dosage: DOSAGE IS UNCERTAIN.
     Route: 048
  2. AVASTIN [Suspect]
     Indication: RECTAL CANCER METASTATIC
     Route: 041
     Dates: start: 20120912, end: 20130227
  3. ELPLAT [Concomitant]
     Indication: RECTAL CANCER METASTATIC
     Dosage: DOSAGE IS UNCERTAIN.
     Route: 041

REACTIONS (2)
  - Pulmonary artery thrombosis [Not Recovered/Not Resolved]
  - Deep vein thrombosis [Not Recovered/Not Resolved]
